FAERS Safety Report 14720572 (Version 4)
Quarter: 2018Q2

REPORT INFORMATION
  Report Type: Report from Study
  Country: HU (occurrence: HU)
  Receive Date: 20180405
  Receipt Date: 20180507
  Transmission Date: 20180711
  Serious: Yes (Hospitalization)
  Sender: FDA-Public Use
  Company Number: HU-EISAI MEDICAL RESEARCH-EC-2018-037716

PATIENT
  Age: 12 Year
  Sex: Male
  Weight: 68 kg

DRUGS (5)
  1. LAMOTRIGIN [Concomitant]
     Active Substance: LAMOTRIGINE
  2. PERAMPANEL [Suspect]
     Active Substance: PERAMPANEL
     Route: 048
     Dates: start: 20170904, end: 20180402
  3. PERAMPANEL [Suspect]
     Active Substance: PERAMPANEL
     Indication: EPILEPSY
     Dosage: TITRATION PERIOD
     Route: 048
     Dates: start: 2017, end: 20170903
  4. VALPROIC ACID. [Concomitant]
     Active Substance: VALPROIC ACID
  5. CLONAZEPAM. [Concomitant]
     Active Substance: CLONAZEPAM

REACTIONS (1)
  - Hallucination, visual [Recovered/Resolved]

NARRATIVE: CASE EVENT DATE: 20180402
